FAERS Safety Report 23998926 (Version 1)
Quarter: 2024Q2

REPORT INFORMATION
  Report Type: Spontaneous
  Country: US (occurrence: US)
  Receive Date: 20240621
  Receipt Date: 20240621
  Transmission Date: 20240716
  Serious: No
  Sender: FDA-Public Use
  Company Number: US-ARDELYX-2024ARDX001015

PATIENT
  Age: 77 Year
  Sex: Male

DRUGS (1)
  1. IBSRELA [Suspect]
     Active Substance: TENAPANOR HYDROCHLORIDE
     Indication: Bowel movement irregularity
     Dosage: 50 MILLIGRAM, SINGLE DOSE (TOOK JUST ONE TABLET.)
     Route: 048
     Dates: start: 202403, end: 202403

REACTIONS (3)
  - Diarrhoea [Unknown]
  - Off label use [Unknown]
  - Wrong technique in product usage process [Unknown]

NARRATIVE: CASE EVENT DATE: 20240301
